FAERS Safety Report 10685592 (Version 1)
Quarter: 2014Q4

REPORT INFORMATION
  Report Type: Spontaneous
  Country: US (occurrence: US)
  Receive Date: 20141231
  Receipt Date: 20141231
  Transmission Date: 20150529
  Serious: No
  Sender: FDA-Public Use
  Company Number: US-TARO-2014P1004661

PATIENT
  Sex: Female

DRUGS (1)
  1. HYDROCORTISONE CREAM USP 2.5% [Suspect]
     Active Substance: HYDROCORTISONE
     Indication: HAEMORRHOIDS
     Route: 061

REACTIONS (1)
  - Application site pain [Unknown]
